FAERS Safety Report 6339870-9 (Version None)
Quarter: 2009Q3

REPORT INFORMATION
  Report Type: 
  Country: None (occurrence: None)
  Receive Date: 20090903
  Receipt Date: 20090820
  Transmission Date: 20100115
  Serious: Yes (Other)
  Sender: FDA-Public Use
  Company Number: JP-PFIZER INC-2009259208

PATIENT
  Age: 85 Year

DRUGS (1)
  1. MIGLITOL [Suspect]
     Indication: DIABETES MELLITUS
     Route: 048

REACTIONS (2)
  - LIVER DISORDER [None]
  - TRANSAMINASES INCREASED [None]
